FAERS Safety Report 7737021-7 (Version None)
Quarter: 2011Q3

REPORT INFORMATION
  Report Type: 
  Country: None (occurrence: None)
  Receive Date: 20110908
  Receipt Date: 20110826
  Transmission Date: 20111222
  Serious: Yes (Hospitalization)
  Sender: FDA-Public Use
  Company Number: US-ELI_LILLY_AND_COMPANY-US201002002422

PATIENT
  Sex: Female

DRUGS (37)
  1. LEVEMIR [Concomitant]
  2. ASPIRIN [Concomitant]
     Dosage: 81 MG, UNK
  3. FLAXSEED OIL [Concomitant]
     Dosage: 1200 MG, QD
  4. METFORMIN HCL [Concomitant]
     Dosage: UNK, UNKNOWN
  5. GLIPIZIDE [Concomitant]
  6. NEXIUM [Concomitant]
  7. METOPROLOL TARTRATE [Concomitant]
  8. GABAPENTIN [Concomitant]
     Dosage: 300 MG, TID
  9. TRAMADOL HCL [Concomitant]
  10. ADVAIR DISKUS 100/50 [Concomitant]
  11. MULTI-VITAMIN [Concomitant]
  12. FORTEO [Suspect]
     Indication: OSTEOPOROSIS
     Dosage: 20 UG, DAILY (1/D)
     Dates: start: 20100111
  13. ALAWAY [Concomitant]
  14. COMBIVENT [Concomitant]
  15. TOPIRAMATE [Concomitant]
  16. PRAVASTATIN SODIUM [Concomitant]
     Dosage: 80 MG, QD
  17. FORTEO [Suspect]
     Dosage: 20 UG, QD
  18. FORTEO [Suspect]
     Dosage: 20 UG, QD
  19. BUTALBITAL [Concomitant]
  20. LIDODERM [Concomitant]
     Route: 062
  21. LISINOPRIL [Concomitant]
  22. LAXATIVES [Concomitant]
     Dosage: UNK, QD
  23. CALCIUM W/MAGNESIUM/ZINC [Concomitant]
     Dosage: UNK, QD
  24. VITAMIN D [Concomitant]
     Dosage: 2000 MG, QD
  25. METFORMIN HCL [Concomitant]
     Dosage: 500 MG, UNK
  26. MIRALAX [Concomitant]
     Dosage: UNK, QD
  27. CHROMIUM PICOLINATE [Concomitant]
     Dosage: 1000 UG, QD
  28. LASIX [Concomitant]
  29. PREMARIN [Concomitant]
  30. FIBER [Concomitant]
     Dosage: UNK, QD
  31. ASCORBIC ACID [Concomitant]
     Dosage: 1000 MG, QD
  32. LEVOTHYROXINE SODIUM [Concomitant]
  33. RESTASIS [Concomitant]
     Route: 047
  34. IPRATROPIUM BROMIDE W/SALBUTAMOL SULFATE [Concomitant]
     Dosage: .5 MG, UNK
  35. PERCOCET [Concomitant]
  36. CALCIUM W/VITAMIN D NOS [Concomitant]
     Dosage: 1200 MG, QD
  37. FISH OIL [Concomitant]
     Dosage: 1000 UG, BID

REACTIONS (11)
  - PAIN [None]
  - PROCEDURAL PAIN [None]
  - NAIL DISORDER [None]
  - PAIN IN EXTREMITY [None]
  - BLOOD GLUCOSE DECREASED [None]
  - FIBROMYALGIA [None]
  - MUSCULOSKELETAL DISCOMFORT [None]
  - SPINAL DISORDER [None]
  - KNEE ARTHROPLASTY [None]
  - BONE PAIN [None]
  - PYREXIA [None]
